FAERS Safety Report 8397550-2 (Version None)
Quarter: 2012Q2

REPORT INFORMATION
  Report Type: 
  Country: None (occurrence: None)
  Receive Date: 20120529
  Receipt Date: 20120529
  Transmission Date: 20120825
  Serious: Yes (Other)
  Sender: FDA-Public Use
  Company Number: None

PATIENT
  Age: 59 Year
  Sex: Male
  Weight: 78.4723 kg

DRUGS (1)
  1. JANUMET [Suspect]
     Dosage: TWO TABLETS ONCE A DAY
     Dates: start: 20120420, end: 20120430

REACTIONS (3)
  - SOMNOLENCE [None]
  - ASTHENIA [None]
  - DIZZINESS [None]
